FAERS Safety Report 5641890-4 (Version None)
Quarter: 2008Q1

REPORT INFORMATION
  Report Type: 
  Country: None (occurrence: None)
  Receive Date: 20080227
  Receipt Date: 20080225
  Transmission Date: 20080703
  Serious: Yes (Other)
  Sender: FDA-Public Use
  Company Number: GB-BOEHRINGER INGELHEIM GMBH, GERMANY-2008-BP-02731RO

PATIENT
  Age: 5 Year
  Sex: Male
  Weight: 20 kg

DRUGS (11)
  1. METHOTREXATE [Suspect]
     Indication: ACUTE LYMPHOCYTIC LEUKAEMIA
     Route: 037
  2. DEXAMETHASONE TAB [Suspect]
     Indication: ACUTE LYMPHOCYTIC LEUKAEMIA
  3. VINCRISTINE [Suspect]
     Indication: ACUTE LYMPHOCYTIC LEUKAEMIA
  4. ASPARAGINASE [Suspect]
     Indication: ACUTE LYMPHOCYTIC LEUKAEMIA
  5. FENTANYL [Concomitant]
     Indication: INDUCTION OF ANAESTHESIA
  6. PROPOFOL [Concomitant]
     Indication: INDUCTION OF ANAESTHESIA
  7. ATRACURIUM BESYLATE [Concomitant]
     Indication: NEUROMUSCULAR BLOCKADE
  8. ISOFLURANE [Concomitant]
     Indication: ANAESTHESIA
     Route: 055
  9. SEVOFLURANE [Concomitant]
     Indication: ANAESTHESIA
     Route: 055
  10. NEOSTIGMINE [Concomitant]
     Indication: NEUROMUSCULAR BLOCKADE REVERSAL
  11. GLYCOPYRROLATE [Concomitant]
     Indication: NEUROMUSCULAR BLOCKADE REVERSAL

REACTIONS (2)
  - ANAESTHETIC COMPLICATION [None]
  - HYPERLIPIDAEMIA [None]
